FAERS Safety Report 10762668 (Version 1)
Quarter: 2015Q1

REPORT INFORMATION
  Report Type: Spontaneous
  Country: US (occurrence: US)
  Receive Date: 20150204
  Receipt Date: 20150204
  Transmission Date: 20150721
  Serious: No
  Sender: FDA-Public Use
  Company Number: US-BAYER-2015-015594

PATIENT
  Age: 52 Year
  Sex: Female
  Weight: 58.96 kg

DRUGS (4)
  1. CLIMARA [Suspect]
     Active Substance: ESTRADIOL
     Indication: MENOPAUSAL SYMPTOMS
     Dosage: 0.025 MG/D, Q1WK
     Route: 062
     Dates: start: 20150122
  2. BLACK COHOSH [Concomitant]
     Active Substance: BLACK COHOSH
     Indication: SUPPLEMENTATION THERAPY
     Dosage: UNK
     Dates: start: 2014, end: 20150121
  3. GINSENG [GINSENG NOS] [Concomitant]
     Indication: SUPPLEMENTATION THERAPY
     Dosage: UNK
  4. LEVOTHYROXINE [Concomitant]
     Active Substance: LEVOTHYROXINE
     Indication: HYPOTHYROIDISM
     Dosage: 50 MCG/24HR, ONCE
     Dates: start: 2011

REACTIONS (1)
  - Hot flush [Recovering/Resolving]

NARRATIVE: CASE EVENT DATE: 20150122
